FAERS Safety Report 15439490 (Version 1)
Quarter: 2018Q3

REPORT INFORMATION
  Report Type: Spontaneous
  Country: US (occurrence: US)
  Receive Date: 20180928
  Receipt Date: 20180928
  Transmission Date: 20181010
  Serious: Yes (Other)
  Sender: FDA-Public Use
  Company Number: US-HORIZON-VIM-1198-2018

PATIENT
  Age: 45 Year
  Sex: Female

DRUGS (1)
  1. VIMOVO [Suspect]
     Active Substance: ESOMEPRAZOLE MAGNESIUM\NAPROXEN
     Indication: RHEUMATOID ARTHRITIS
     Dosage: ONE TABLET ONCE DAILY
     Route: 048
     Dates: start: 2016

REACTIONS (3)
  - Intentional product use issue [Unknown]
  - Insurance issue [Unknown]
  - Rheumatoid arthritis [Unknown]
